FAERS Safety Report 5908110-4 (Version None)
Quarter: 2008Q4

REPORT INFORMATION
  Report Type: 
  Country: None (occurrence: None)
  Receive Date: 20081003
  Receipt Date: 20080922
  Transmission Date: 20090506
  Serious: Yes (Other)
  Sender: FDA-Public Use
  Company Number: BR-PFIZER INC-2008080767

PATIENT
  Sex: Female
  Weight: 73 kg

DRUGS (2)
  1. DETRUSITOL LA [Suspect]
     Indication: HYPERTONIC BLADDER
     Dosage: TEXT:4MG 1X/DAY EVERY DAY TDD:4MG
     Route: 048
     Dates: start: 20080701
  2. AMITRIPTYLINE HYDROCHLORIDE [Suspect]
     Indication: DEPRESSION
     Dosage: TEXT:UNKNOWN UNKNOW UNKNOWN TDD:UNKNOWN
     Route: 065

REACTIONS (5)
  - DRY MOUTH [None]
  - FLUID RETENTION [None]
  - SKIN EXFOLIATION [None]
  - SOMNOLENCE [None]
  - WEIGHT DECREASED [None]
